FAERS Safety Report 6090656-2 (Version None)
Quarter: 2009Q1

REPORT INFORMATION
  Report Type: 
  Country: None (occurrence: None)
  Receive Date: 20090223
  Receipt Date: 20090218
  Transmission Date: 20090719
  Serious: Yes (Hospitalization)
  Sender: FDA-Public Use
  Company Number: 041595

PATIENT
  Age: 75 Year
  Sex: Male

DRUGS (2)
  1. METHOTHREXATE [Suspect]
     Indication: RHEUMATOID ARTHRITIS
     Dosage: 7.5 MG, 1/WEEK, ORAL
     Route: 048
  2. HYDROXYCHLOROQUINE SULFATE [Suspect]
     Indication: RHEUMATOID ARTHRITIS
     Dosage: 200 MG, BID, ORAL
     Route: 048

REACTIONS (2)
  - LUNG NEOPLASM MALIGNANT [None]
  - OPERATIVE HAEMORRHAGE [None]
